FAERS Safety Report 22390252 (Version 1)
Quarter: 2023Q2

REPORT INFORMATION
  Report Type: Spontaneous
  Country: US (occurrence: US)
  Receive Date: 20230531
  Receipt Date: 20230531
  Transmission Date: 20230722
  Serious: No
  Sender: FDA-Public Use
  Company Number: US-PFIZER INC-PV202300089105

PATIENT
  Age: 57 Year
  Sex: Female

DRUGS (2)
  1. XELJANZ [Suspect]
     Active Substance: TOFACITINIB CITRATE
     Indication: Psoriasis
     Dosage: 5 MG, 1X/DAY
     Dates: start: 20230509
  2. XELJANZ [Suspect]
     Active Substance: TOFACITINIB CITRATE
     Indication: Eczema

REACTIONS (2)
  - Blood cholesterol increased [Unknown]
  - Off label use [Unknown]

NARRATIVE: CASE EVENT DATE: 20230509
